FAERS Safety Report 6001088-7 (Version None)
Quarter: 2008Q4

REPORT INFORMATION
  Report Type: 
  Country: None (occurrence: None)
  Receive Date: 20081215
  Receipt Date: 20081208
  Transmission Date: 20090506
  Serious: Yes (Disabling)
  Sender: FDA-Public Use
  Company Number: US-PURDUE-USA_2007_0029755

PATIENT
  Sex: Female

DRUGS (6)
  1. OXYCONTIN [Suspect]
     Indication: SPINAL OSTEOARTHRITIS
     Dosage: UNK MG, UNK
     Route: 048
  2. OXYCODONE HCL [Suspect]
     Indication: BREAKTHROUGH PAIN
     Dosage: 5 MG, Q4- 6H PRN
     Route: 048
  3. DIAZEPAM [Concomitant]
     Indication: DRUG USE FOR UNKNOWN INDICATION
     Dosage: 10 MG, UNK
  4. ESTROGENIC SUBSTANCE [Concomitant]
     Indication: DRUG USE FOR UNKNOWN INDICATION
  5. MOTRIN [Concomitant]
     Indication: DRUG USE FOR UNKNOWN INDICATION
     Dosage: UNK, UNK
  6. MS CONTIN [Concomitant]
     Indication: SPINAL OSTEOARTHRITIS
     Dosage: 60 MG, TID
     Dates: end: 20070201

REACTIONS (10)
  - CHEST PAIN [None]
  - DENTAL CARIES [None]
  - DRY MOUTH [None]
  - EYE SWELLING [None]
  - GINGIVAL DISORDER [None]
  - INFECTION [None]
  - LOCAL SWELLING [None]
  - PAIN [None]
  - SWELLING FACE [None]
  - TOOTH LOSS [None]
